FAERS Safety Report 9276002 (Version 1)
Quarter: 2013Q2

REPORT INFORMATION
  Report Type: Spontaneous
  Country: US (occurrence: US)
  Receive Date: 20130507
  Receipt Date: 20130507
  Transmission Date: 20140414
  Serious: No
  Sender: FDA-Public Use
  Company Number: US-009507513-1305USA002743

PATIENT
  Age: 9 Year
  Sex: Female

DRUGS (3)
  1. CLARITIN ORAL SOLUTION [Suspect]
     Indication: SEASONAL ALLERGY
     Dosage: 10 MG, QD
     Route: 048
     Dates: start: 20130415, end: 20130417
  2. CLARITIN ORAL SOLUTION [Suspect]
     Dosage: 10 MG, ONCE
     Route: 048
     Dates: start: 20130417
  3. CLARITIN ORAL SOLUTION [Suspect]
     Dosage: 10 MG, ONCE
     Route: 048
     Dates: start: 20130417

REACTIONS (2)
  - Accidental overdose [Unknown]
  - No adverse event [Unknown]
